FAERS Safety Report 11100094 (Version 1)
Quarter: 2015Q2

REPORT INFORMATION
  Report Type: Spontaneous
  Country: AU (occurrence: AU)
  Receive Date: 20150508
  Receipt Date: 20150508
  Transmission Date: 20150821
  Serious: Yes (Other)
  Sender: FDA-Public Use
  Company Number: AU-IROKO PRODUCTS LTD-AU-I09001-15-00061

PATIENT
  Age: 51 Year
  Sex: Female

DRUGS (1)
  1. INDOMETHACIN AMBIGUOUS [Suspect]
     Active Substance: INDOMETHACIN
     Indication: RENAL COLIC
     Route: 065

REACTIONS (3)
  - Reversible cerebral vasoconstriction syndrome [Unknown]
  - Off label use [Unknown]
  - Subarachnoid haemorrhage [Recovered/Resolved]
